FAERS Safety Report 4667979-4 (Version None)
Quarter: 2005Q2

REPORT INFORMATION
  Report Type: 
  Country: None (occurrence: None)
  Receive Date: 20050519
  Receipt Date: 20050510
  Transmission Date: 20051028
  Serious: Yes (Hospitalization)
  Sender: FDA-Public Use
  Company Number: 2005-05-0697

PATIENT
  Age: 18 Year
  Sex: Male
  Weight: 70 kg

DRUGS (6)
  1. INTRON A [Suspect]
     Indication: CHRONIC MYELOID LEUKAEMIA
     Dosage: 3-10 MU INTRAVENOUS
     Route: 042
     Dates: start: 20010209, end: 20010222
  2. INTRON A [Suspect]
     Indication: CHRONIC MYELOID LEUKAEMIA
     Dosage: 3-10 MU INTRAVENOUS
     Route: 042
     Dates: start: 20010223, end: 20010308
  3. INTRON A [Suspect]
     Indication: CHRONIC MYELOID LEUKAEMIA
     Dosage: 3-10 MU INTRAVENOUS
     Route: 042
     Dates: start: 20010209, end: 20010807
  4. INTRON A [Suspect]
     Indication: CHRONIC MYELOID LEUKAEMIA
     Dosage: 3-10 MU INTRAVENOUS
     Route: 042
     Dates: end: 20010807
  5. INTRON A [Suspect]
     Indication: CHRONIC MYELOID LEUKAEMIA
     Dosage: 3-10 MU INTRAVENOUS
     Route: 042
     Dates: start: 20010309
  6. GLEEVEC [Suspect]
     Dosage: 400 MG QD
     Dates: end: 20020412

REACTIONS (3)
  - ARTHRALGIA [None]
  - ASEPTIC NECROSIS BONE [None]
  - BONE PAIN [None]
